FAERS Safety Report 16754679 (Version 1)
Quarter: 2019Q3

REPORT INFORMATION
  Report Type: Spontaneous
  Country: US (occurrence: US)
  Receive Date: 20190829
  Receipt Date: 20190829
  Transmission Date: 20191005
  Serious: Yes (Hospitalization, Other)
  Sender: FDA-Public Use
  Company Number: US-BRISTOL-MYERS SQUIBB COMPANY-BMS-2019-084735

PATIENT
  Age: 70 Year
  Sex: Male

DRUGS (1)
  1. NIVOLUMAB [Suspect]
     Active Substance: NIVOLUMAB
     Indication: NEUROENDOCRINE TUMOUR OF THE LUNG
     Dosage: UNK
     Route: 065
     Dates: start: 201511

REACTIONS (5)
  - Stomatitis [Unknown]
  - Fatigue [Unknown]
  - Pruritus [Unknown]
  - Intentional product use issue [Unknown]
  - Rash [Unknown]

NARRATIVE: CASE EVENT DATE: 2016
